FAERS Safety Report 7775851-6 (Version None)
Quarter: 2011Q3

REPORT INFORMATION
  Report Type: 
  Country: None (occurrence: None)
  Receive Date: 20110923
  Receipt Date: 20110916
  Transmission Date: 20111222
  Serious: Yes (Hospitalization)
  Sender: FDA-Public Use
  Company Number: KR-ELI_LILLY_AND_COMPANY-KR201109004774

PATIENT
  Age: 63 Year
  Sex: Female
  Weight: 63 kg

DRUGS (4)
  1. HUMALOG MIX 75/25 [Suspect]
     Indication: TYPE 2 DIABETES MELLITUS
     Dosage: 32 U, EACH MORNING
     Route: 058
     Dates: start: 20100601
  2. HUMALOG MIX 75/25 [Suspect]
     Dosage: 22 U, EACH EVENING
     Route: 058
     Dates: start: 20100601
  3. HUMALOG MIX 75/25 [Suspect]
     Dosage: 22 U, OTHER
     Route: 058
     Dates: start: 20100601
  4. ANTIHYPERTENSIVES [Concomitant]
     Dosage: UNK
     Dates: start: 20010101

REACTIONS (2)
  - PYELONEPHRITIS [None]
  - VULVOVAGINAL DISCOMFORT [None]
